FAERS Safety Report 17026674 (Version 2)
Quarter: 2019Q4

REPORT INFORMATION
  Report Type: Spontaneous
  Country: FR (occurrence: FR)
  Receive Date: 20191113
  Receipt Date: 20191212
  Transmission Date: 20200122
  Serious: Yes (Hospitalization)
  Sender: FDA-Public Use
  Company Number: FR-MYLANLABS-2019M1107611

PATIENT
  Age: 72 Year
  Sex: Female
  Weight: 66 kg

DRUGS (5)
  1. CAELYX [Suspect]
     Active Substance: DOXORUBICIN HYDROCHLORIDE
     Indication: OVARIAN CANCER METASTATIC
     Dosage: UNK
     Route: 042
     Dates: start: 201902
  2. LEVOTHYROX [Concomitant]
     Active Substance: LEVOTHYROXINE
     Dosage: UNK
     Route: 048
  3. AVASTIN [Suspect]
     Active Substance: BEVACIZUMAB
     Indication: OVARIAN CANCER METASTATIC
     Dosage: INCONNUE
     Route: 042
     Dates: start: 201902, end: 20190315
  4. SIMVASTATIN. [Suspect]
     Active Substance: SIMVASTATIN
     Indication: OVARIAN CANCER METASTATIC
     Dosage: UNK
     Route: 042
     Dates: start: 201902, end: 20190315
  5. CARBOPLATIN. [Suspect]
     Active Substance: CARBOPLATIN
     Indication: OVARIAN CANCER METASTATIC
     Dosage: UNK
     Route: 042
     Dates: start: 201902

REACTIONS (2)
  - Hypertension [Recovering/Resolving]
  - Proteinuria [Recovered/Resolved]

NARRATIVE: CASE EVENT DATE: 20190315
